FAERS Safety Report 22648405 (Version 1)
Quarter: 2023Q2

REPORT INFORMATION
  Report Type: Report from Study
  Country: BR (occurrence: BR)
  Receive Date: 20230628
  Receipt Date: 20230628
  Transmission Date: 20230721
  Serious: Yes (Other)
  Sender: FDA-Public Use
  Company Number: BR-CELLTRION INC.-2023BR008434

PATIENT

DRUGS (6)
  1. INFLIXIMAB [Suspect]
     Active Substance: INFLIXIMAB
     Indication: Psoriatic arthropathy
     Dosage: 4 AMPOULES EVERY 6 WEEKS
     Route: 042
     Dates: start: 20221017
  2. INFLIXIMAB [Suspect]
     Active Substance: INFLIXIMAB
     Dosage: 4 AMPOULES EVERY 6 WEEKS
     Route: 042
     Dates: start: 20230616
  3. ATENOLOL [Concomitant]
     Active Substance: ATENOLOL
     Indication: Hypertension
     Dosage: 2 PILLS A DAY/ 12 YEARS AGO
     Route: 048
  4. LOSARTAN [Concomitant]
     Active Substance: LOSARTAN
     Indication: Hypertension
     Dosage: 2 PILLS A DAY/2 YEARS AGO
     Route: 048
  5. GLIFAGE [Concomitant]
     Active Substance: METFORMIN HYDROCHLORIDE
     Indication: Diabetes mellitus
     Dosage: 2 PILLS A DAY/ 10 YEARS AGO
     Route: 048
  6. SERTRALINE [Concomitant]
     Active Substance: SERTRALINE HYDROCHLORIDE
     Indication: Insomnia
     Dosage: 1 PILL A DAY/ 3 YEARS AGO
     Route: 048

REACTIONS (17)
  - Eye haemorrhage [Unknown]
  - Optic ischaemic neuropathy [Unknown]
  - Head discomfort [Unknown]
  - Dysstasia [Unknown]
  - Facial pain [Unknown]
  - Thermal burn [Unknown]
  - Back pain [Unknown]
  - Headache [Unknown]
  - Gait disturbance [Unknown]
  - Influenza [Recovered/Resolved]
  - Nasopharyngitis [Unknown]
  - Pain in extremity [Unknown]
  - Pruritus [Unknown]
  - Sinusitis [Recovering/Resolving]
  - Therapy interrupted [Unknown]
  - Intentional dose omission [Unknown]
  - Intentional product use issue [Unknown]

NARRATIVE: CASE EVENT DATE: 20230519
